FAERS Safety Report 23309436 (Version 1)
Quarter: 2023Q4

REPORT INFORMATION
  Report Type: Spontaneous
  Country: CA (occurrence: CA)
  Receive Date: 20231218
  Receipt Date: 20231218
  Transmission Date: 20240110
  Serious: Yes (Hospitalization)
  Sender: FDA-Public Use
  Company Number: CA-AMGEN-CANSP2023223394

PATIENT
  Age: 45 Year
  Sex: Female
  Weight: 68.5 kg

DRUGS (2)
  1. AVSOLA [Suspect]
     Active Substance: INFLIXIMAB-AXXQ
     Indication: Product used for unknown indication
     Dosage: UNK
     Route: 065
     Dates: start: 20231106
  2. INFLIXIMAB [Suspect]
     Active Substance: INFLIXIMAB
     Indication: Crohn^s disease
     Dosage: 10 MILLIGRAM
     Route: 042

REACTIONS (3)
  - Unevaluable event [Unknown]
  - Off label use [Unknown]
  - Cough [Not Recovered/Not Resolved]

NARRATIVE: CASE EVENT DATE: 20231106
